FAERS Safety Report 8084564-5 (Version None)
Quarter: 2012Q1

REPORT INFORMATION
  Report Type: 
  Country: None (occurrence: None)
  Receive Date: 20120128
  Receipt Date: 20110316
  Transmission Date: 20120608
  Serious: No
  Sender: FDA-Public Use
  Company Number: US-ABBOTT-11P-163-0712208-00

PATIENT
  Sex: Male
  Weight: 72.64 kg

DRUGS (9)
  1. FLAXSEED OIL [Concomitant]
     Indication: PRODUCT USED FOR UNKNOWN INDICATION
  2. HUMIRA [Suspect]
     Indication: CROHN'S DISEASE
     Dosage: 1ST LOADING DOSE
     Dates: start: 20100310, end: 20100310
  3. HUMIRA [Suspect]
  4. ATREZA [Concomitant]
     Indication: CROHN'S DISEASE
  5. LEXAPRO [Concomitant]
     Indication: ANXIETY
  6. PROBIOTIC [Concomitant]
     Indication: PRODUCT USED FOR UNKNOWN INDICATION
  7. HUMIRA [Suspect]
     Indication: COLITIS ULCERATIVE
     Dosage: 2ND LOADING DOSE
  8. LEXAPRO [Concomitant]
     Indication: DEPRESSION
  9. VICODIN [Concomitant]
     Indication: PAIN
     Dosage: TAKES ABOUT HALF A PILL EVERY OTHER DAY AS NEEDED.

REACTIONS (4)
  - DIZZINESS [None]
  - ASTHENIA [None]
  - FATIGUE [None]
  - HEADACHE [None]
